FAERS Safety Report 9752148 (Version 1)
Quarter: 2013Q4

REPORT INFORMATION
  Report Type: Spontaneous
  Country: US (occurrence: None)
  Receive Date: 20131212
  Receipt Date: 20131212
  Transmission Date: 20140711
  Serious: Yes (Life-Threatening)
  Sender: FDA-Public Use
  Company Number: None

PATIENT
  Age: 36 Year
  Sex: Female
  Weight: 115.67 kg

DRUGS (2)
  1. CYMBALTA [Suspect]
     Indication: SPINAL CORD NEOPLASM
     Dosage: AT BEDTIME, TAKEN BY MOUTH
  2. GABAPENTIN [Suspect]

REACTIONS (3)
  - Somnolence [None]
  - Fatigue [None]
  - Memory impairment [None]
